FAERS Safety Report 10108581 (Version 1)
Quarter: 2014Q2

REPORT INFORMATION
  Report Type: Spontaneous
  Country: US (occurrence: US)
  Receive Date: 20140425
  Receipt Date: 20140425
  Transmission Date: 20141212
  Serious: Yes (Hospitalization)
  Sender: FDA-Public Use
  Company Number: US-BIOGENIDEC-2014BI033892

PATIENT
  Age: 61 Year
  Sex: Female

DRUGS (4)
  1. AVONEX [Suspect]
     Indication: MULTIPLE SCLEROSIS
     Route: 030
     Dates: start: 20120223
  2. CYCLOBENZAPRINE HCL [Concomitant]
  3. ATORVASTATIN CALCIUM [Concomitant]
  4. LEVOTHYROXINE SODIUM [Concomitant]

REACTIONS (4)
  - Fall [Recovered/Resolved]
  - Head injury [Unknown]
  - Spinal column injury [Unknown]
  - Foot fracture [Unknown]
